FAERS Safety Report 7176650-9 (Version None)
Quarter: 2010Q4

REPORT INFORMATION
  Report Type: 
  Country: None (occurrence: None)
  Receive Date: 20101220
  Receipt Date: 20101209
  Transmission Date: 20110411
  Serious: Yes (Other)
  Sender: FDA-Public Use
  Company Number: US-PFIZER INC-2010156755

PATIENT
  Sex: Female
  Weight: 72.109 kg

DRUGS (2)
  1. CHANTIX [Suspect]
     Indication: SMOKING CESSATION THERAPY
     Dosage: 0.5 MG, 1X/DAY
     Route: 048
     Dates: start: 20101116
  2. CELEBREX [Concomitant]
     Indication: ARTHRITIS
     Dosage: UNK

REACTIONS (7)
  - ASTHMA [None]
  - BURNOUT SYNDROME [None]
  - EMPHYSEMA [None]
  - FEAR [None]
  - FEELING OF DESPAIR [None]
  - SUICIDE ATTEMPT [None]
  - URINARY TRACT INFECTION [None]
